FAERS Safety Report 23114264 (Version 1)
Quarter: 2023Q4

REPORT INFORMATION
  Report Type: Spontaneous
  Country: CH (occurrence: CH)
  Receive Date: 20231027
  Receipt Date: 20231027
  Transmission Date: 20240110
  Serious: Yes (Other)
  Sender: FDA-Public Use
  Company Number: CH-MYLANLABS-2023M1107263

PATIENT
  Age: 75 Year
  Sex: Female

DRUGS (2)
  1. XANAX [Suspect]
     Active Substance: ALPRAZOLAM
     Indication: Product used for unknown indication
     Dosage: UNK
     Route: 065
  2. OXAZEPAM [Concomitant]
     Active Substance: OXAZEPAM
     Dosage: UNK
     Route: 065

REACTIONS (3)
  - Insomnia [Unknown]
  - Anxiety [Unknown]
  - Pain [Unknown]
